FAERS Safety Report 7071729-4 (Version None)
Quarter: 2010Q4

REPORT INFORMATION
  Report Type: 
  Country: None (occurrence: None)
  Receive Date: 20101029
  Receipt Date: 20091013
  Transmission Date: 20110411
  Serious: No
  Sender: FDA-Public Use
  Company Number: A0811608A

PATIENT
  Age: 68 Year
  Sex: Female

DRUGS (6)
  1. ADVAIR DISKUS 100/50 [Suspect]
     Indication: ILL-DEFINED DISORDER
     Dosage: 1PUFF AS REQUIRED
     Route: 055
     Dates: start: 20090701
  2. SPIRIVA [Concomitant]
  3. BLOOD PRESSURE MEDICATION [Concomitant]
  4. VITAMINS [Concomitant]
  5. ANTI-CHOLESTEROL MEDICATION [Concomitant]
  6. ANTI-INFLAMMATORY [Concomitant]

REACTIONS (3)
  - APHONIA [None]
  - CONDITION AGGRAVATED [None]
  - DYSPNOEA [None]
